FAERS Safety Report 8999649 (Version 1)
Quarter: 2013Q1

REPORT INFORMATION
  Report Type: Spontaneous
  Country: JP (occurrence: JP)
  Receive Date: 20130102
  Receipt Date: 20130102
  Transmission Date: 20140127
  Serious: Yes (Other)
  Sender: FDA-Public Use
  Company Number: JP-ASTRAZENECA-2012SE95936

PATIENT
  Sex: 0

DRUGS (2)
  1. DIPRIVAN [Suspect]
     Indication: SEDATION
     Dosage: 25 ML/H
     Route: 042
  2. DIPRIVAN [Suspect]
     Indication: SEDATION
     Dosage: 20 ML/H
     Route: 042

REACTIONS (2)
  - Blood pressure decreased [Recovered/Resolved]
  - Incorrect dose administered by device [Unknown]
